FAERS Safety Report 6609249-0 (Version None)
Quarter: 2010Q1

REPORT INFORMATION
  Report Type: 
  Country: None (occurrence: None)
  Receive Date: 20100224
  Receipt Date: 20100216
  Transmission Date: 20100710
  Serious: Yes (Hospitalization)
  Sender: FDA-Public Use
  Company Number: 20107885

PATIENT
  Age: 34 Year

DRUGS (1)
  1. LIORESAL [Suspect]
     Indication: MUSCLE SPASTICITY
     Dosage: DAILY, INTRATHECAL
     Route: 037

REACTIONS (13)
  - ABNORMAL BEHAVIOUR [None]
  - DIARRHOEA [None]
  - EYE HAEMORRHAGE [None]
  - FEELING DRUNK [None]
  - HALLUCINATION [None]
  - LETHARGY [None]
  - MENTAL STATUS CHANGES [None]
  - NAUSEA [None]
  - OVERDOSE [None]
  - PRODUCT CONTAMINATION [None]
  - SOMNOLENCE [None]
  - VOMITING [None]
  - WITHDRAWAL SYNDROME [None]
